FAERS Safety Report 20489611 (Version 1)
Quarter: 2022Q1

REPORT INFORMATION
  Report Type: Spontaneous
  Country: US (occurrence: US)
  Receive Date: 20220218
  Receipt Date: 20220218
  Transmission Date: 20220423
  Serious: Yes (Hospitalization, Other)
  Sender: FDA-Public Use
  Company Number: US-Eisai Medical Research-EC-2022-108565

PATIENT

DRUGS (1)
  1. ZONISAMIDE [Suspect]
     Active Substance: ZONISAMIDE
     Indication: Weight decreased
     Dosage: 300 MG, QD (CAPSULES)
     Route: 048

REACTIONS (3)
  - Toxic epidermal necrolysis [Recovering/Resolving]
  - Delirium [Recovering/Resolving]
  - Product use in unapproved indication [Recovered/Resolved]
